FAERS Safety Report 11114761 (Version 5)
Quarter: 2018Q1

REPORT INFORMATION
  Report Type: Report from Study
  Country: US (occurrence: US)
  Receive Date: 20150515
  Receipt Date: 20180214
  Transmission Date: 20180508
  Serious: Yes (Death, Other)
  Sender: FDA-Public Use
  Company Number: PHEH2015US008914

PATIENT
  Age: 86 Year
  Sex: Female

DRUGS (2)
  1. SANDOSTATIN LAR DEPOT [Suspect]
     Active Substance: OCTREOTIDE ACETATE
     Dosage: 10 MG, UNK
     Route: 065
  2. SANDOSTATIN LAR DEPOT [Suspect]
     Active Substance: OCTREOTIDE ACETATE
     Indication: GASTROINTESTINAL ARTERIOVENOUS MALFORMATION
     Dosage: 20 MG, QMO
     Route: 065
     Dates: start: 2014

REACTIONS (4)
  - Product use in unapproved indication [Unknown]
  - Hypoacusis [Unknown]
  - Internal haemorrhage [Not Recovered/Not Resolved]
  - Chronic obstructive pulmonary disease [Fatal]

NARRATIVE: CASE EVENT DATE: 20180108
